FAERS Safety Report 12956814 (Version 1)
Quarter: 2016Q4

REPORT INFORMATION
  Report Type: Spontaneous
  Country: IT (occurrence: IT)
  Receive Date: 20161118
  Receipt Date: 20161118
  Transmission Date: 20170207
  Serious: Yes (Other)
  Sender: FDA-Public Use
  Company Number: IT-JNJFOC-20161114576

PATIENT
  Age: 71 Year
  Sex: Female

DRUGS (1)
  1. RIVAROXABAN [Suspect]
     Active Substance: RIVAROXABAN
     Indication: ATRIAL FIBRILLATION
     Route: 048
     Dates: start: 201506

REACTIONS (10)
  - Subarachnoid haemorrhage [Unknown]
  - Paraparesis [Unknown]
  - Hypoaesthesia [Unknown]
  - Bladder dysfunction [Unknown]
  - Spinal subdural haematoma [Unknown]
  - Back pain [Unknown]
  - Paraplegia [Unknown]
  - Pneumonia [Unknown]
  - Areflexia [Unknown]
  - Cerebral ischaemia [Unknown]
